FAERS Safety Report 7883859-5 (Version None)
Quarter: 2011Q4

REPORT INFORMATION
  Report Type: 
  Country: None (occurrence: None)
  Receive Date: 20111102
  Receipt Date: 20111020
  Transmission Date: 20120403
  Serious: Yes (Other)
  Sender: FDA-Public Use
  Company Number: BR-ELI_LILLY_AND_COMPANY-BR201110005607

PATIENT
  Age: 64 Year
  Sex: Male

DRUGS (4)
  1. HYDROCHLOROTHIAZIDE [Concomitant]
     Indication: HYPERTENSION
     Dosage: 25 MG, OTHER
     Route: 065
  2. FLUOXETINE HCL [Suspect]
     Indication: DEPRESSION
     Dosage: 20 MG, OTHER
     Route: 065
  3. DIAZEPAM [Concomitant]
     Indication: DEPRESSION
     Dosage: 10 MG, OTHER
  4. LOSARTAN POTASSIUM [Concomitant]
     Indication: HYPERTENSION
     Dosage: 100 MG, QD
     Route: 065

REACTIONS (11)
  - DIVERTICULUM [None]
  - SUPRAVENTRICULAR TACHYCARDIA [None]
  - PEPTIC ULCER PERFORATION [None]
  - FATIGUE [None]
  - DEPRESSION [None]
  - COLITIS [None]
  - ATRIOVENTRICULAR BLOCK [None]
  - ANXIETY [None]
  - OBESITY [None]
  - CHEST PAIN [None]
  - GASTROINTESTINAL TRACT ADENOMA [None]
